FAERS Safety Report 26187732 (Version 1)
Quarter: 2025Q4

REPORT INFORMATION
  Report Type: Spontaneous
  Country: US (occurrence: None)
  Receive Date: 20251222
  Receipt Date: 20251222
  Transmission Date: 20260117
  Serious: Yes (Disabling, Other)
  Sender: FDA-CTU
  Company Number: None

PATIENT
  Age: 56 Year
  Sex: Male

DRUGS (1)
  1. TIRZEPATIDE [Suspect]
     Active Substance: TIRZEPATIDE
     Dates: start: 20251101

REACTIONS (4)
  - Self-medication [None]
  - Poor quality product administered [None]
  - Product label issue [None]
  - Illness [None]

NARRATIVE: CASE EVENT DATE: 20251208
